FAERS Safety Report 8775422 (Version 10)
Quarter: 2013Q1

REPORT INFORMATION
  Report Type: Report from Study
  Country: MY (occurrence: MY)
  Receive Date: 20120910
  Receipt Date: 20130227
  Transmission Date: 20140127
  Serious: Yes (Death, Hospitalization, Disabling)
  Sender: FDA-Public Use
  Company Number: MY-AMGEN-MYSCT2012056394

PATIENT
  Age: 65 Year
  Sex: Male
  Weight: 43.3 kg

DRUGS (5)
  1. PANITUMUMAB [Suspect]
     Indication: COLORECTAL CANCER
     Dosage: 260 MG, UNK
     Dates: start: 20120829, end: 20120829
  2. TRAMADOL [Concomitant]
     Dosage: 50 MG, UNK
     Route: 048
     Dates: start: 20120829, end: 20120902
  3. DEXAMETHASONE [Concomitant]
     Dosage: 2 MG, UNK
     Route: 048
     Dates: start: 20120829, end: 20120902
  4. RANITIDINE [Concomitant]
     Dosage: 150 MG, UNK
     Route: 048
     Dates: start: 20120829, end: 20120902
  5. PIRITON [Concomitant]
     Dosage: 10 MG, UNK
     Route: 042
     Dates: start: 20120829, end: 20120905

REACTIONS (1)
  - Cerebral infarction [Fatal]
